FAERS Safety Report 9079868 (Version 2)
Quarter: 2013Q1

REPORT INFORMATION
  Report Type: Spontaneous
  Country: DE (occurrence: DE)
  Receive Date: 20130215
  Receipt Date: 20130312
  Transmission Date: 20140127
  Serious: Yes (Other)
  Sender: FDA-Public Use
  Company Number: DE-GLAXOSMITHKLINE-D0078772A

PATIENT
  Age: 61 Year
  Sex: Male

DRUGS (2)
  1. AVAMYS [Suspect]
     Route: 045
  2. TAMSULOSIN [Suspect]
     Route: 065

REACTIONS (1)
  - Haemorrhagic diathesis [Unknown]
